FAERS Safety Report 9804670 (Version 1)
Quarter: 2014Q1

REPORT INFORMATION
  Report Type: Spontaneous
  Country: CZ (occurrence: CZ)
  Receive Date: 20140108
  Receipt Date: 20140108
  Transmission Date: 20141002
  Serious: Yes (Other)
  Sender: FDA-Public Use
  Company Number: CZ-VERTEX PHARMACEUTICALS INC-2014-000088

PATIENT
  Sex: Male

DRUGS (3)
  1. INCIVO [Suspect]
     Indication: CHRONIC HEPATITIS C
     Dates: start: 201311, end: 201312
  2. PEGASYS [Suspect]
     Indication: CHRONIC HEPATITIS C
     Dates: end: 201312
  3. RIBAVIRIN [Suspect]
     Indication: CHRONIC HEPATITIS C
     Dates: end: 201312

REACTIONS (1)
  - Dermatitis bullous [Recovered/Resolved]
